FAERS Safety Report 23674194 (Version 5)
Quarter: 2025Q2

REPORT INFORMATION
  Report Type: Other
  Country: PL (occurrence: None)
  Receive Date: 20240326
  Receipt Date: 20250408
  Transmission Date: 20250717
  Serious: Yes (Other)
  Sender: INCYTE
  Company Number: PL-002147023-NVSC2024PL055956

PATIENT
  Age: 66 Year

DRUGS (10)
  1. RUXOLITINIB [Suspect]
     Active Substance: RUXOLITINIB
     Indication: Graft versus host disease
     Route: 065
  2. RUXOLITINIB [Suspect]
     Active Substance: RUXOLITINIB
     Route: 065
  3. RUXOLITINIB [Suspect]
     Active Substance: RUXOLITINIB
     Route: 065
  4. TACROLIMUS [Suspect]
     Active Substance: TACROLIMUS
     Indication: Graft versus host disease
     Route: 065
  5. BUDESONIDE [Suspect]
     Active Substance: BUDESONIDE
     Indication: Graft versus host disease
  6. METHYLPREDNISOLONE [Suspect]
     Active Substance: METHYLPREDNISOLONE
     Indication: Graft versus host disease
     Route: 065
  7. METHOTREXATE [Concomitant]
     Active Substance: METHOTREXATE
     Indication: Product used for unknown indication
     Route: 065
  8. CYCLOSPORINE [Concomitant]
     Active Substance: CYCLOSPORINE
     Indication: Product used for unknown indication
     Route: 065
  9. RIFAXIMIN [Concomitant]
     Active Substance: RIFAXIMIN
     Indication: Faecal calprotectin
     Route: 065
  10. AZITHROMYCIN [Concomitant]
     Active Substance: AZITHROMYCIN
     Indication: Faecal calprotectin
     Route: 065

REACTIONS (14)
  - Cognitive disorder [Unknown]
  - Asthenia [Unknown]
  - Hypogammaglobulinaemia [Unknown]
  - Pneumatosis intestinalis [Unknown]
  - Cardiac failure [Unknown]
  - Myopathy [Unknown]
  - Platelet count abnormal [Unknown]
  - Hypoalbuminaemia [Unknown]
  - Hypoproteinaemia [Unknown]
  - Cytomegalovirus infection [Unknown]
  - Epstein-Barr virus infection reactivation [Unknown]
  - Type 2 diabetes mellitus [Unknown]
  - Off label use [Unknown]
  - Haemorrhagic diathesis [Unknown]
